FAERS Safety Report 10229840 (Version 1)
Quarter: 2014Q2

REPORT INFORMATION
  Report Type: Spontaneous
  Country: US (occurrence: None)
  Receive Date: 20140610
  Receipt Date: 20140610
  Transmission Date: 20141212
  Serious: Yes (Other)
  Sender: FDA-Public Use
  Company Number: None

PATIENT
  Age: 83 Year
  Sex: Female
  Weight: 67.13 kg

DRUGS (9)
  1. AZITHROMYCIN [Suspect]
     Indication: PNEUMONIA
  2. AZITHROMYCIN [Suspect]
     Indication: CYSTITIS
  3. AZITHROMYCIN [Suspect]
     Indication: LUNG INFECTION
  4. LINEZOLID [Suspect]
  5. LINEZOLID [Suspect]
  6. LINEZOLID [Suspect]
  7. AZTREONAM [Suspect]
  8. ZANTAC [Concomitant]
  9. CO. Q10 [Concomitant]

REACTIONS (11)
  - Abdominal pain upper [None]
  - Faeces discoloured [None]
  - Tremor [None]
  - Dyspnoea [None]
  - Panic reaction [None]
  - Pain [None]
  - Decreased appetite [None]
  - Asthenia [None]
  - Fatigue [None]
  - Gait disturbance [None]
  - Rash pruritic [None]
